FAERS Safety Report 7409929-3 (Version None)
Quarter: 2011Q2

REPORT INFORMATION
  Report Type: 
  Country: None (occurrence: None)
  Receive Date: 20110412
  Receipt Date: 20110314
  Transmission Date: 20111010
  Serious: Yes (Other)
  Sender: FDA-Public Use
  Company Number: PHHY2009NZ57210

PATIENT
  Sex: Female

DRUGS (1)
  1. CLOZARIL [Suspect]
     Indication: SCHIZOPHRENIA
     Dosage: UNK
     Dates: start: 20090325, end: 20091001

REACTIONS (4)
  - CARDIOMYOPATHY [None]
  - DELUSION [None]
  - PSYCHOTIC DISORDER [None]
  - SINUS TACHYCARDIA [None]
